FAERS Safety Report 20762515 (Version 1)
Quarter: 2022Q2

REPORT INFORMATION
  Report Type: Spontaneous
  Country: US (occurrence: US)
  Receive Date: 20220428
  Receipt Date: 20220428
  Transmission Date: 20220721
  Serious: No
  Sender: FDA-Public Use
  Company Number: US-PFIZER INC-202200344092

PATIENT

DRUGS (1)
  1. IBRANCE [Suspect]
     Active Substance: PALBOCICLIB
     Dosage: UNK
     Dates: start: 202202

REACTIONS (3)
  - Dizziness [Unknown]
  - Irritability [Unknown]
  - Malaise [Unknown]

NARRATIVE: CASE EVENT DATE: 20220201
